FAERS Safety Report 26185622 (Version 1)
Quarter: 2025Q4

REPORT INFORMATION
  Report Type: Spontaneous
  Country: US (occurrence: None)
  Receive Date: 20251219
  Receipt Date: 20251219
  Transmission Date: 20260117
  Serious: Yes (Other)
  Sender: FDA-CTU
  Company Number: None

PATIENT
  Age: 88 Year
  Sex: Male
  Weight: 91.6 kg

DRUGS (2)
  1. ACORAMIDIS [Suspect]
     Active Substance: ACORAMIDIS
     Indication: Cardiac amyloidosis
     Dosage: 712 MG TWWICE A DAY ORAL
     Route: 048
     Dates: start: 20251201
  2. WARFARIN [Suspect]
     Active Substance: WARFARIN
     Indication: Anticoagulant therapy
     Dates: end: 20251211

REACTIONS (2)
  - Drug interaction [None]
  - Anticoagulation drug level above therapeutic [None]

NARRATIVE: CASE EVENT DATE: 20251210
